FAERS Safety Report 6775288-2 (Version None)
Quarter: 2010Q2

REPORT INFORMATION
  Report Type: 
  Country: None (occurrence: None)
  Receive Date: 20100615
  Receipt Date: 20100615
  Transmission Date: 20101027
  Serious: Yes (Life-Threatening, Hospitalization, Other)
  Sender: FDA-Public Use
  Company Number: None

PATIENT
  Sex: Female
  Weight: 23 kg

DRUGS (1)
  1. ENBREL [Suspect]
     Indication: JUVENILE ARTHRITIS
     Dosage: 12.5 MG WEEKLY SQ
     Route: 058
     Dates: start: 20100410, end: 20100522

REACTIONS (3)
  - ACUTE LYMPHOCYTIC LEUKAEMIA [None]
  - EPISTAXIS [None]
  - PANCYTOPENIA [None]
